FAERS Safety Report 6490952-0 (Version None)
Quarter: 2009Q4

REPORT INFORMATION
  Report Type: 
  Country: None (occurrence: None)
  Receive Date: 20091211
  Receipt Date: 20091201
  Transmission Date: 20100525
  Serious: Yes (Life-Threatening)
  Sender: FDA-Public Use
  Company Number: GXKR2009NL13096

PATIENT
  Sex: Female
  Weight: 52 kg

DRUGS (4)
  1. ENALAPRIL MALEATE SANDOZ (NGX) [Suspect]
     Dosage: 1 DF, QD
     Route: 048
     Dates: start: 20010101
  2. SIMVASTATIN SANDOZ (NGX) [Suspect]
     Dosage: 1 DF, QD
     Route: 048
     Dates: start: 20010101
  3. INSUMAN INFUSAT [Suspect]
     Dosage: 100 IE/ML PATR 3.15 ML
  4. INFLUENZA VACCINE [Suspect]
     Dosage: UNK
     Dates: end: 20091112

REACTIONS (2)
  - HYPOGLYCAEMIA [None]
  - HYPOGLYCAEMIC COMA [None]
